FAERS Safety Report 9331458 (Version 1)
Quarter: 2013Q2

REPORT INFORMATION
  Report Type: Spontaneous
  Country: CN (occurrence: CN)
  Receive Date: 20130605
  Receipt Date: 20130605
  Transmission Date: 20140414
  Serious: Yes (Other)
  Sender: FDA-Public Use
  Company Number: CN-ASTRAZENECA-2012SE74572

PATIENT
  Age: 36 Year
  Sex: Male

DRUGS (4)
  1. LOSEC [Suspect]
     Indication: GASTRIC ULCER
     Route: 048
     Dates: start: 201203
  2. LOSEC [Suspect]
     Indication: GASTRIC ULCER
     Route: 048
     Dates: start: 201209
  3. TALCID [Concomitant]
     Indication: GASTRIC DISORDER
     Route: 048
     Dates: start: 201203, end: 201203
  4. COLLOIDAL BISMUTH PECTIN [Concomitant]
     Indication: GASTRIC DISORDER
     Route: 048
     Dates: start: 201209

REACTIONS (3)
  - Faeces discoloured [Unknown]
  - Abdominal pain upper [Unknown]
  - Intentional drug misuse [Unknown]
